FAERS Safety Report 4448016-3 (Version None)
Quarter: 2004Q3

REPORT INFORMATION
  Report Type: 
  Country: None (occurrence: None)
  Receive Date: 20040913
  Receipt Date: 20030929
  Transmission Date: 20050211
  Serious: Yes (Hospitalization, Other)
  Sender: FDA-Public Use
  Company Number: US-MERCK-0310USA00100

PATIENT
  Sex: Female
  Weight: 68 kg

DRUGS (13)
  1. VIOXX [Suspect]
     Indication: HEADACHE
     Route: 048
  2. MIDRIN [Concomitant]
     Indication: HEADACHE
     Route: 065
     Dates: start: 20000915
  3. ELAVIL [Concomitant]
     Indication: HEADACHE
     Route: 048
     Dates: start: 20000915
  4. NORVASC [Concomitant]
     Route: 065
  5. CELEXA [Concomitant]
     Indication: DEPRESSION
     Route: 065
  6. PREMARIN [Concomitant]
     Route: 065
  7. LEVOTHYROXINE SODIUM [Concomitant]
     Route: 065
  8. ROBAXIN [Concomitant]
     Indication: HEADACHE
     Route: 065
     Dates: start: 20000915
  9. PHENOBARBITAL [Concomitant]
     Indication: CONVULSION
     Route: 065
  10. VIOXX [Suspect]
     Route: 048
     Dates: start: 20000915, end: 20010201
  11. VIOXX [Suspect]
     Indication: ARTHRITIS
     Route: 048
     Dates: start: 20000915, end: 20010201
  12. VIOXX [Suspect]
     Route: 048
  13. EFFEXOR [Concomitant]
     Indication: DEPRESSION
     Route: 065

REACTIONS (84)
  - ACROCHORDON [None]
  - ANGINA UNSTABLE [None]
  - ANGIOPATHY [None]
  - AORTIC VALVE INCOMPETENCE [None]
  - ARTERIOSCLEROSIS [None]
  - BLOOD CALCIUM INCREASED [None]
  - BLOOD PRESSURE SYSTOLIC INCREASED [None]
  - BUNDLE BRANCH BLOCK [None]
  - BUNDLE BRANCH BLOCK LEFT [None]
  - CALCINOSIS [None]
  - CARDIAC DISORDER [None]
  - CARDIAC FAILURE CONGESTIVE [None]
  - CARDIAC MURMUR [None]
  - CARDIOMEGALY [None]
  - CEREBRAL ATROPHY [None]
  - CEREBRAL ISCHAEMIA [None]
  - CHEST PAIN [None]
  - COAGULATION TIME PROLONGED [None]
  - CONDITION AGGRAVATED [None]
  - CONTUSION [None]
  - CONVULSION [None]
  - CORNEAL DEPOSITS [None]
  - CORONARY ARTERY DISEASE [None]
  - CORONARY ARTERY STENOSIS [None]
  - CRYING [None]
  - CYSTITIS [None]
  - DEEP VEIN THROMBOSIS [None]
  - DEPRESSION [None]
  - DIARRHOEA [None]
  - DIZZINESS POSTURAL [None]
  - ELECTROCARDIOGRAM ST-T CHANGE [None]
  - ELECTROCARDIOGRAM T WAVE ABNORMAL [None]
  - EYE DISORDER [None]
  - EYE HAEMORRHAGE [None]
  - FALL [None]
  - FATIGUE [None]
  - FLUID OVERLOAD [None]
  - FLUID RETENTION [None]
  - FOOT FRACTURE [None]
  - GALLBLADDER DISORDER [None]
  - GASTROINTESTINAL DISORDER [None]
  - GASTROOESOPHAGEAL REFLUX DISEASE [None]
  - HYPERCHOLESTEROLAEMIA [None]
  - HYPERTENSION [None]
  - HYPERTENSIVE CARDIOMYOPATHY [None]
  - HYPERTONIC BLADDER [None]
  - IMMUNE SYSTEM DISORDER [None]
  - INSOMNIA [None]
  - INTERNATIONAL NORMALISED RATIO INCREASED [None]
  - ISCHAEMIC CARDIOMYOPATHY [None]
  - KIDNEY INFECTION [None]
  - KLEBSIELLA INFECTION [None]
  - LOSS OF CONSCIOUSNESS [None]
  - LUNG DISORDER [None]
  - MACULAR DEGENERATION [None]
  - MIGRAINE [None]
  - MITRAL VALVE DISEASE [None]
  - MITRAL VALVE INCOMPETENCE [None]
  - MYOCARDIAL INFARCTION [None]
  - MYOCARDIAL ISCHAEMIA [None]
  - MYOGLOBIN BLOOD INCREASED [None]
  - NAUSEA [None]
  - OEDEMA PERIPHERAL [None]
  - ORTHOSTATIC HYPOTENSION [None]
  - OSTEOPOROSIS [None]
  - PAPILLOMA EXCISION [None]
  - PARATHYROID TUMOUR BENIGN [None]
  - PERICARDIAL EFFUSION [None]
  - PROTHROMBIN TIME PROLONGED [None]
  - PULMONARY HYPERTENSION [None]
  - RENAL MASS [None]
  - SPINAL OSTEOARTHRITIS [None]
  - STRESS INCONTINENCE [None]
  - SUPRAVENTRICULAR EXTRASYSTOLES [None]
  - SUPRAVENTRICULAR TACHYCARDIA [None]
  - SYNCOPE [None]
  - THYROID DISORDER [None]
  - URGE INCONTINENCE [None]
  - URINARY INCONTINENCE [None]
  - URINARY TRACT INFECTION [None]
  - UTERINE DISORDER [None]
  - VENTRICULAR DYSFUNCTION [None]
  - WEIGHT DECREASED [None]
  - WEIGHT INCREASED [None]
